FAERS Safety Report 9443800 (Version 1)
Quarter: 2013Q3

REPORT INFORMATION
  Report Type: Spontaneous
  Country: US (occurrence: US)
  Receive Date: 20130806
  Receipt Date: 20130806
  Transmission Date: 20140515
  Serious: Yes (Other)
  Sender: FDA-Public Use
  Company Number: US-B.I. PHARMACEUTICALS,INC./RIDGEFIELD-2013-BI-23182GD

PATIENT
  Age: 58 Year
  Sex: Female

DRUGS (8)
  1. CLONIDINE [Suspect]
     Indication: HYPERTENSION
     Dosage: 0.4 MG
  2. CLONIDINE [Suspect]
     Indication: HYPERTENSION
     Dosage: ADDITIONAL DOSE OF CLONIDINE FOR 1 DAY AFTER 1ST WEEK OF CHEMOTHERAPY WITH TAPER BACK TO BASELINE DO
  3. CLONIDINE [Suspect]
     Dosage: ADDITIONAL 0.1 MG DOSE OF CLONIDINE
  4. TAPENTADOL [Suspect]
     Indication: PAIN
     Dosage: 50 MG
  5. TRIAMTERENE/HYDROCHLORTHIAZIDE [Concomitant]
  6. VALSARTAN [Concomitant]
  7. CALCIUM CITRATE WITH VITAMIN D [Concomitant]
  8. CELECOXIB [Concomitant]

REACTIONS (3)
  - Drug interaction [Recovered/Resolved]
  - Hypertension [Recovered/Resolved]
  - Heart rate increased [Recovered/Resolved]
